FAERS Safety Report 10360931 (Version 1)
Quarter: 2014Q3

REPORT INFORMATION
  Report Type: Spontaneous
  Country: GB (occurrence: None)
  Receive Date: 20140731
  Receipt Date: 20140731
  Transmission Date: 20150326
  Serious: Yes (Other)
  Sender: FDA-Public Use
  Company Number: 2014EDG00009

PATIENT
  Age: 26 Year
  Sex: Male

DRUGS (2)
  1. FLUOXETINE (FLUOXETINE) UNKNOWN [Suspect]
     Active Substance: FLUOXETINE HYDROCHLORIDE
  2. ALCOHOL (ALCOHOL) [Suspect]
     Active Substance: ALCOHOL

REACTIONS (10)
  - Alcoholism [None]
  - Gambling [None]
  - Abnormal behaviour [None]
  - Economic problem [None]
  - Insomnia [None]
  - Euphoric mood [None]
  - Impulsive behaviour [None]
  - Tremor [None]
  - Hypersexuality [None]
  - Emotional disorder [None]
